FAERS Safety Report 6159568-X (Version None)
Quarter: 2009Q2

REPORT INFORMATION
  Report Type: 
  Country: None (occurrence: None)
  Receive Date: 20090414
  Receipt Date: 20090414
  Transmission Date: 20091009
  Serious: Yes (Other)
  Sender: FDA-Public Use
  Company Number: None

PATIENT
  Sex: Female
  Weight: 57.1532 kg

DRUGS (1)
  1. METOPROLOL TARTRATE [Suspect]
     Indication: INCREASED UPPER AIRWAY SECRETION
     Dosage: 25 MG - 1/2 TAB. TWICE A DAY
     Dates: start: 20090226, end: 20090329

REACTIONS (3)
  - DIZZINESS [None]
  - HALLUCINATION, VISUAL [None]
  - VOMITING [None]
